FAERS Safety Report 10273292 (Version 1)
Quarter: 2014Q2

REPORT INFORMATION
  Report Type: Spontaneous
  Country: US (occurrence: None)
  Receive Date: 20140630
  Receipt Date: 20140630
  Transmission Date: 20141212
  Serious: Yes (Hospitalization)
  Sender: FDA-Public Use
  Company Number: None

PATIENT
  Age: 69 Year
  Sex: Male

DRUGS (2)
  1. LISINOPRIL [Suspect]
     Route: 048
     Dates: start: 20140204
  2. SPIRONOLACTONE [Suspect]
     Route: 048
     Dates: start: 20140313

REACTIONS (4)
  - Diarrhoea [None]
  - Dehydration [None]
  - Blood potassium increased [None]
  - Drug interaction [None]
